FAERS Safety Report 8328601-9 (Version None)
Quarter: 2012Q2

REPORT INFORMATION
  Report Type: 
  Country: None (occurrence: None)
  Receive Date: 20120430
  Receipt Date: 20120412
  Transmission Date: 20120825
  Serious: Yes (Death, Hospitalization, Other)
  Sender: FDA-Public Use
  Company Number: 2012MA005042

PATIENT
  Age: 22 Year
  Sex: Male

DRUGS (3)
  1. DEXAMETHASONE [Concomitant]
  2. PHENYTOIN [Suspect]
     Indication: CONVULSION PROPHYLAXIS
     Dosage: 100 MG;TID
     Dates: start: 19940810
  3. CARMUSTINE [Concomitant]

REACTIONS (4)
  - STEVENS-JOHNSON SYNDROME [None]
  - ANTICONVULSANT DRUG LEVEL BELOW THERAPEUTIC [None]
  - SHOCK [None]
  - THROMBOCYTOPENIA [None]
